FAERS Safety Report 24392501 (Version 1)
Quarter: 2024Q4

REPORT INFORMATION
  Report Type: Spontaneous
  Country: US (occurrence: None)
  Receive Date: 20241002
  Receipt Date: 20241002
  Transmission Date: 20250115
  Serious: Yes (Life-Threatening, Hospitalization, Disabling, Other)
  Sender: Public
  Company Number: None

PATIENT
  Age: 17 Year
  Sex: Male
  Weight: 60.75 kg

DRUGS (2)
  1. CLARAVIS [Suspect]
     Active Substance: ISOTRETINOIN
     Indication: Acne
     Dosage: OTHER QUANTITY : 2 CAPSULE(S);?
     Route: 048
     Dates: start: 20180924, end: 20190224
  2. ACCUTANE [Concomitant]

REACTIONS (10)
  - Osteogenesis imperfecta [None]
  - Lower limb fracture [None]
  - Gastrointestinal disorder [None]
  - Suicide attempt [None]
  - Disability [None]
  - Psychotic disorder [None]
  - Schizophrenia [None]
  - Loss of personal independence in daily activities [None]
  - Impaired driving ability [None]
  - Impaired work ability [None]

NARRATIVE: CASE EVENT DATE: 20200701
